FAERS Safety Report 23980043 (Version 1)
Quarter: 2024Q2

REPORT INFORMATION
  Report Type: Spontaneous
  Country: FR (occurrence: FR)
  Receive Date: 20240617
  Receipt Date: 20240617
  Transmission Date: 20240716
  Serious: Yes (Hospitalization)
  Sender: FDA-Public Use
  Company Number: None

PATIENT
  Age: 4 Year
  Sex: Male

DRUGS (1)
  1. RISPERDAL [Suspect]
     Active Substance: RISPERIDONE
     Indication: Accidental exposure to product
     Dosage: NP
     Route: 048
     Dates: start: 20240322, end: 20240322

REACTIONS (4)
  - Accidental overdose [Recovered/Resolved]
  - Respiratory distress [Recovered/Resolved]
  - Disturbance in attention [Recovered/Resolved]
  - Accidental exposure to product [Recovered/Resolved]

NARRATIVE: CASE EVENT DATE: 20240322
